FAERS Safety Report 10144897 (Version 1)
Quarter: 2014Q2

REPORT INFORMATION
  Report Type: Spontaneous
  Country: US (occurrence: US)
  Receive Date: 20140430
  Receipt Date: 20140430
  Transmission Date: 20141212
  Serious: No
  Sender: FDA-Public Use
  Company Number: US-SANOFI-AVENTIS-2013SA092708

PATIENT
  Sex: Female

DRUGS (14)
  1. DEMEROL [Suspect]
  2. INDOMETHACIN [Concomitant]
  3. FENOFIBRATE [Concomitant]
  4. VITAMIN D [Concomitant]
  5. CHOLECALCIFEROL [Concomitant]
  6. LEVOTHYROXINE [Concomitant]
  7. OSTEO BI-FLEX [Concomitant]
  8. DETROL [Concomitant]
  9. FISH OIL [Concomitant]
  10. CRESTOR [Concomitant]
  11. METFORMIN [Concomitant]
  12. CLONAZEPAM [Concomitant]
  13. NEURONTIN [Concomitant]
  14. CELEBREX [Concomitant]

REACTIONS (1)
  - Drug hypersensitivity [Unknown]
